FAERS Safety Report 12768851 (Version 1)
Quarter: 2016Q3

REPORT INFORMATION
  Report Type: Spontaneous
  Country: US (occurrence: US)
  Receive Date: 20160921
  Receipt Date: 20160921
  Transmission Date: 20161109
  Serious: No
  Sender: FDA-Public Use
  Company Number: US-JAZZ-2016-US-010311

PATIENT
  Sex: Female

DRUGS (26)
  1. XYREM [Suspect]
     Active Substance: SODIUM OXYBATE
     Dosage: 3 G, BID
     Route: 048
     Dates: start: 201605
  2. FISH OIL [Concomitant]
     Active Substance: FISH OIL
  3. PERCOCET [Concomitant]
     Active Substance: ACETAMINOPHEN\OXYCODONE HYDROCHLORIDE
  4. SUDAFED [Concomitant]
     Active Substance: PSEUDOEPHEDRINE HYDROCHLORIDE
  5. ZYRTEC [Concomitant]
     Active Substance: CETIRIZINE HYDROCHLORIDE
  6. AMBIEN CR [Concomitant]
     Active Substance: ZOLPIDEM TARTRATE
  7. FENOFIBRATE. [Concomitant]
     Active Substance: FENOFIBRATE
  8. PREVACID [Concomitant]
     Active Substance: LANSOPRAZOLE
  9. VITAMIN D3 [Concomitant]
     Active Substance: CHOLECALCIFEROL
  10. IMITREX [Concomitant]
     Active Substance: SUMATRIPTAN SUCCINATE
  11. TYLENOL EXTRA STRENGTH [Concomitant]
     Active Substance: ACETAMINOPHEN
  12. SIMVASTATIN. [Concomitant]
     Active Substance: SIMVASTATIN
  13. BIOTIN [Concomitant]
     Active Substance: BIOTIN
  14. VITAMIN E [Concomitant]
     Active Substance: .ALPHA.-TOCOPHEROL
  15. MULTIVITAMINS [Concomitant]
     Active Substance: VITAMINS
  16. TRAMADOL HCL [Concomitant]
     Active Substance: TRAMADOL HYDROCHLORIDE
  17. VITAMIN B12 [Concomitant]
     Active Substance: CYANOCOBALAMIN
  18. ZINC [Concomitant]
     Active Substance: ZINC\ZINC CHLORIDE
  19. XYREM [Suspect]
     Active Substance: SODIUM OXYBATE
     Indication: FIBROMYALGIA
     Dosage: 2.25 G, BID
     Route: 048
     Dates: start: 201605, end: 201605
  20. TOPROL XL [Concomitant]
     Active Substance: METOPROLOL SUCCINATE
  21. CINNAMON. [Concomitant]
     Active Substance: CINNAMON
  22. FIBERCON [Concomitant]
     Active Substance: CALCIUM POLYCARBOPHIL
  23. STOOL SOFTENER [Concomitant]
     Active Substance: DOCUSATE CALCIUM
  24. MAGNESIUM OXIDE. [Concomitant]
     Active Substance: MAGNESIUM OXIDE
  25. ACIDOPHILUS [Concomitant]
     Active Substance: LACTOBACILLUS ACIDOPHILUS
  26. PYRIDOXINE [Concomitant]
     Active Substance: PYRIDOXINE

REACTIONS (1)
  - Mood altered [Unknown]

NARRATIVE: CASE EVENT DATE: 2016
